FAERS Safety Report 6335513-9 (Version None)
Quarter: 2009Q3

REPORT INFORMATION
  Report Type: 
  Country: None (occurrence: None)
  Receive Date: 20090827
  Receipt Date: 20090811
  Transmission Date: 20100115
  Serious: Yes (Hospitalization)
  Sender: FDA-Public Use
  Company Number: DSA_40584_2009

PATIENT
  Age: 51 Year
  Sex: Female

DRUGS (6)
  1. ENALAPRIL MALEATE [Suspect]
     Indication: HYPERTENSION
     Dosage: 20 MG QD, ORAL
     Route: 048
     Dates: end: 20090328
  2. IBUPROFEN [Suspect]
     Indication: ARTHRALGIA
     Dosage: DF, ORAL
     Route: 048
     Dates: start: 20090316, end: 20090323
  3. ASPIRIN [Suspect]
     Indication: CARDIOLIPIN ANTIBODY
     Dosage: 150 MG, QD, ORAL
     Route: 048
     Dates: start: 20090302
  4. BISOPROLOL FUMARATE [Concomitant]
  5. OMEPRAZOLE [Concomitant]
  6. SIMVASTATIN [Concomitant]

REACTIONS (2)
  - ACUTE HEPATIC FAILURE [None]
  - DRUG INTERACTION [None]
